FAERS Safety Report 6030841-9 (Version None)
Quarter: 2009Q1

REPORT INFORMATION
  Report Type: 
  Country: None (occurrence: None)
  Receive Date: 20090106
  Receipt Date: 20081222
  Transmission Date: 20090719
  Serious: Yes (Other)
  Sender: FDA-Public Use
  Company Number: 2008S1022631

PATIENT
  Age: 35 Year
  Sex: Female

DRUGS (2)
  1. VENLAFAXINE (VENLAFAXINE) (150 MG) [Suspect]
     Indication: DEPRESSION
     Dosage: 150 MG; ORAL
     Route: 048
     Dates: start: 20080801, end: 20081124
  2. MIRTAZAPINE [Concomitant]

REACTIONS (3)
  - ACTIVATED PARTIAL THROMBOPLASTIN TIME ABNORMAL [None]
  - CONTUSION [None]
  - INTERNATIONAL NORMALISED RATIO DECREASED [None]
